FAERS Safety Report 4716487-0 (Version None)
Quarter: 2005Q3

REPORT INFORMATION
  Report Type: 
  Country: None (occurrence: None)
  Receive Date: 20050714
  Receipt Date: 20050704
  Transmission Date: 20060218
  Serious: Yes (Other)
  Sender: FDA-Public Use
  Company Number: 2005073516

PATIENT
  Age: 59 Year
  Sex: Female
  Weight: 75 kg

DRUGS (5)
  1. ZOLOFT [Suspect]
     Indication: DEPRESSION
     Dosage: (1 IN 1 D), ORAL
     Route: 048
     Dates: start: 20050101, end: 20050318
  2. ALL OTHER THERAPEUTIC PRODUCUTS (ALL OTHER THERAPEUTIC PRODUCTS) [Concomitant]
  3. THYROXIN (LEVOTHYROXINE SODIUM) [Concomitant]
  4. BISOPROLOL FUMARATE [Concomitant]
  5. FOSAMAX [Concomitant]

REACTIONS (5)
  - CEREBRAL DISORDER [None]
  - CONFUSIONAL STATE [None]
  - DEPRESSED LEVEL OF CONSCIOUSNESS [None]
  - GLOBAL AMNESIA [None]
  - ROAD TRAFFIC ACCIDENT [None]
